FAERS Safety Report 24366194 (Version 1)
Quarter: 2024Q3

REPORT INFORMATION
  Report Type: Spontaneous
  Country: US (occurrence: None)
  Receive Date: 20240925
  Receipt Date: 20240925
  Transmission Date: 20241017
  Serious: Yes (Hospitalization)
  Sender: Public
  Company Number: None

PATIENT
  Sex: Male

DRUGS (11)
  1. SKYRIZI [Suspect]
     Active Substance: RISANKIZUMAB-RZAA
     Indication: Crohn^s disease
     Dosage: OTHER FREQUENCY : EVERY 8 WEEKS;?FREQ: INJECT 180 MG INTO FATTY TISSUE UNDER THE SKIN (SUBCUTANEOUS
     Route: 058
  2. AZITHROMYCIN [Concomitant]
     Active Substance: AZITHROMYCIN
  3. BUDESONIDE\FORMOTEROL FUMARATE [Concomitant]
     Active Substance: BUDESONIDE\FORMOTEROL FUMARATE
  4. BUDESONIDE [Concomitant]
     Active Substance: BUDESONIDE
  5. DULOXETINE [Concomitant]
     Active Substance: DULOXETINE
  6. ESCITALOPRAM [Concomitant]
     Active Substance: ESCITALOPRAM OXALATE
  7. FAMOTIDINE [Concomitant]
     Active Substance: FAMOTIDINE
  8. FENTANYL [Concomitant]
     Active Substance: FENTANYL\FENTANYL CITRATE
  9. FLUCONAZOLE [Concomitant]
     Active Substance: FLUCONAZOLE
  10. HUMIRA [Concomitant]
     Active Substance: ADALIMUMAB
  11. HYDROXY HCL [Concomitant]

REACTIONS (5)
  - Crohn^s disease [None]
  - Weight abnormal [None]
  - Diarrhoea [None]
  - Abdominal pain [None]
  - Quality of life decreased [None]
